FAERS Safety Report 6788665-0 (Version None)
Quarter: 2010Q2

REPORT INFORMATION
  Report Type: 
  Country: None (occurrence: None)
  Receive Date: 20100623
  Receipt Date: 20080409
  Transmission Date: 20101027
  Serious: No
  Sender: FDA-Public Use
  Company Number: US-PFIZER INC-2008032126

PATIENT
  Age: 42 Year
  Sex: Female

DRUGS (5)
  1. GEODON [Suspect]
     Indication: BIPOLAR DISORDER
     Route: 048
     Dates: start: 20070130, end: 20080310
  2. LITHIUM [Concomitant]
     Indication: BIPOLAR DISORDER
     Route: 048
     Dates: start: 20060501
  3. LEXAPRO [Concomitant]
     Indication: BIPOLAR DISORDER
     Route: 048
     Dates: start: 20071101
  4. LORAZEPAM [Concomitant]
     Route: 048
     Dates: end: 20080402
  5. COGENTIN [Concomitant]
     Indication: EXTRAPYRAMIDAL DISORDER
     Route: 048
     Dates: start: 20080227, end: 20080402

REACTIONS (1)
  - MASKED FACIES [None]
